FAERS Safety Report 12343181 (Version 1)
Quarter: 2016Q2

REPORT INFORMATION
  Report Type: Spontaneous
  Country: US (occurrence: US)
  Receive Date: 20160506
  Receipt Date: 20160506
  Transmission Date: 20160815
  Serious: Yes (Other)
  Sender: FDA-Public Use
  Company Number: US-ASTRAZENECA-2016SE47994

PATIENT
  Age: 24417 Day
  Sex: Male
  Weight: 124.7 kg

DRUGS (5)
  1. BYDUREON [Suspect]
     Active Substance: EXENATIDE
     Indication: HUNGER
     Route: 058
     Dates: start: 2014
  2. BYDUREON [Suspect]
     Active Substance: EXENATIDE
     Indication: TYPE 2 DIABETES MELLITUS
     Route: 058
     Dates: start: 2014
  3. LISINOPRIL. [Suspect]
     Active Substance: LISINOPRIL
     Indication: BLOOD PRESSURE ABNORMAL
     Route: 048
     Dates: start: 2012
  4. BYDUREON [Suspect]
     Active Substance: EXENATIDE
     Indication: WEIGHT INCREASED
     Route: 058
     Dates: start: 2014
  5. METFORMIN [Concomitant]
     Active Substance: METFORMIN HYDROCHLORIDE
     Indication: BLOOD GLUCOSE INCREASED
     Route: 048
     Dates: start: 2012

REACTIONS (5)
  - Off label use [Not Recovered/Not Resolved]
  - Syringe issue [Unknown]
  - Drug dose omission [Unknown]
  - Product use issue [Not Recovered/Not Resolved]
  - Basal cell carcinoma [Unknown]

NARRATIVE: CASE EVENT DATE: 2014
